FAERS Safety Report 5645988-6 (Version None)
Quarter: 2008Q1

REPORT INFORMATION
  Report Type: 
  Country: None (occurrence: None)
  Receive Date: 20080229
  Receipt Date: 20080219
  Transmission Date: 20080703
  Serious: Yes (Other)
  Sender: FDA-Public Use
  Company Number: US-PFIZER INC-2008015847

PATIENT
  Sex: Female

DRUGS (2)
  1. LYRICA [Suspect]
     Indication: NEURALGIA
     Dates: start: 20080201, end: 20080217
  2. XANAX [Concomitant]

REACTIONS (11)
  - ADVERSE DRUG REACTION [None]
  - BACK INJURY [None]
  - BACK PAIN [None]
  - BURNING SENSATION [None]
  - NECK PAIN [None]
  - PAIN [None]
  - SKELETAL INJURY [None]
  - SPINAL FRACTURE [None]
  - TINNITUS [None]
  - TREMOR [None]
  - TRICHOTILLOMANIA [None]
